FAERS Safety Report 10831410 (Version 1)
Quarter: 2015Q1

REPORT INFORMATION
  Report Type: Report from Study
  Country: US (occurrence: US)
  Receive Date: 20150219
  Receipt Date: 20150219
  Transmission Date: 20150721
  Serious: No
  Sender: FDA-Public Use
  Company Number: US-ABBVIE-14P-163-1191769-00

PATIENT
  Age: 56 Year
  Sex: Male

DRUGS (5)
  1. HUMIRA [Suspect]
     Active Substance: ADALIMUMAB
     Indication: CROHN^S DISEASE
     Dosage: DAY 1
     Dates: start: 20131115, end: 20131115
  2. HUMIRA [Suspect]
     Active Substance: ADALIMUMAB
     Dosage: DAY 15
     Dates: start: 20131129, end: 20131129
  3. HUMIRA [Suspect]
     Active Substance: ADALIMUMAB
     Dosage: DAY 29
     Dates: start: 20131213, end: 20131213
  4. HUMIRA [Suspect]
     Active Substance: ADALIMUMAB
     Dosage: DAY 44
     Dates: start: 20131228
  5. METHOTREXATE [Concomitant]
     Active Substance: METHOTREXATE
     Indication: CROHN^S DISEASE

REACTIONS (9)
  - Viral skin infection [Unknown]
  - Pneumonia [Recovering/Resolving]
  - Respiratory tract congestion [Not Recovered/Not Resolved]
  - Haematoma [Not Recovered/Not Resolved]
  - Pyrexia [Recovering/Resolving]
  - Incorrect dose administered [Recovered/Resolved]
  - Influenza like illness [Recovering/Resolving]
  - Pain [Recovering/Resolving]
  - Fatigue [Not Recovered/Not Resolved]

NARRATIVE: CASE EVENT DATE: 20131115
